FAERS Safety Report 6685048-9 (Version None)
Quarter: 2010Q2

REPORT INFORMATION
  Report Type: 
  Country: None (occurrence: None)
  Receive Date: 20100416
  Receipt Date: 20100412
  Transmission Date: 20101027
  Serious: Yes (Death, Hospitalization)
  Sender: FDA-Public Use
  Company Number: A0834893A

PATIENT
  Age: 63 Year
  Sex: Female

DRUGS (1)
  1. AVANDIA [Suspect]
     Route: 048

REACTIONS (4)
  - ACUTE MYOCARDIAL INFARCTION [None]
  - ARTERIOSCLEROSIS CORONARY ARTERY [None]
  - HYPERTENSION [None]
  - TYPE 2 DIABETES MELLITUS [None]
